FAERS Safety Report 17469914 (Version 5)
Quarter: 2020Q3

REPORT INFORMATION
  Report Type: Report from Study
  Country: US (occurrence: US)
  Receive Date: 20200227
  Receipt Date: 20200828
  Transmission Date: 20201102
  Serious: Yes (Other)
  Sender: FDA-Public Use
  Company Number: NVSC2020US053478

PATIENT
  Sex: Female

DRUGS (3)
  1. COSENTYX [Suspect]
     Active Substance: SECUKINUMAB
     Indication: PSORIASIS
     Dosage: UNK, QW (FOR  5 WEEKS AND ONCE A MONTH))
     Route: 065
     Dates: start: 20200212
  2. COSENTYX [Suspect]
     Active Substance: SECUKINUMAB
     Dosage: UNK, QW (FOR  5 WEEKS AND ONCE A MONTH))
     Route: 065
     Dates: start: 20200603
  3. COSENTYX [Suspect]
     Active Substance: SECUKINUMAB
     Indication: PSORIATIC ARTHROPATHY
     Dosage: 150 MG, QMO
     Route: 058

REACTIONS (13)
  - Sleep disorder [Unknown]
  - Lethargy [Unknown]
  - Tremor [Unknown]
  - Systemic lupus erythematosus [Unknown]
  - Dysuria [Unknown]
  - Hyperhidrosis [Unknown]
  - Skin disorder [Unknown]
  - Urinary tract infection [Unknown]
  - Head discomfort [Unknown]
  - Feeling abnormal [Unknown]
  - Cognitive disorder [Unknown]
  - Cerebral disorder [Unknown]
  - Fatigue [Unknown]
